FAERS Safety Report 23020907 (Version 1)
Quarter: 2023Q4

REPORT INFORMATION
  Report Type: Spontaneous
  Country: NL (occurrence: None)
  Receive Date: 20231003
  Receipt Date: 20231003
  Transmission Date: 20240109
  Serious: Yes (Other)
  Sender: FDA-Public Use
  Company Number: 2023A217565

PATIENT
  Age: 51 Year
  Sex: Male
  Weight: 95.6 kg

DRUGS (1)
  1. SEROQUEL XR [Suspect]
     Active Substance: QUETIAPINE FUMARATE
     Indication: Panic disorder
     Dates: start: 20130101, end: 20230811

REACTIONS (1)
  - Electrocardiogram QT prolonged [Recovered/Resolved]
